FAERS Safety Report 4920050-6 (Version None)
Quarter: 2006Q1

REPORT INFORMATION
  Report Type: 
  Country: None (occurrence: None)
  Receive Date: 20060217
  Receipt Date: 20060213
  Transmission Date: 20060701
  Serious: Yes (Other)
  Sender: FDA-Public Use
  Company Number: S06-USA-00487-01

PATIENT
  Age: 1 Month
  Sex: Male

DRUGS (2)
  1. LEXAPRO [Suspect]
     Dates: start: 20040301, end: 20041201
  2. MIRCETTE [Suspect]
     Dates: start: 20040301, end: 20041201

REACTIONS (3)
  - DRUG EXPOSURE VIA BREAST MILK [None]
  - REFUSAL OF TREATMENT BY RELATIVE [None]
  - WEIGHT GAIN POOR [None]
